FAERS Safety Report 16545161 (Version 2)
Quarter: 2019Q3

REPORT INFORMATION
  Report Type: Report from Study
  Country: None (occurrence: BE)
  Receive Date: 20190709
  Receipt Date: 20190924
  Transmission Date: 20191004
  Serious: Yes (Hospitalization)
  Sender: FDA-Public Use
  Company Number: BE-ABBVIE-19S-013-2632333-00

PATIENT
  Sex: Female

DRUGS (5)
  1. DUODOPA [Suspect]
     Active Substance: CARBIDOPA\LEVODOPA
     Indication: PARKINSON^S DISEASE
     Dosage: MD= 2.5ML??CD= 0.9ML/HR DURING 16HRS ??ED= 0.5ML
     Route: 050
     Dates: start: 20170612, end: 20170616
  2. DUODOPA [Suspect]
     Active Substance: CARBIDOPA\LEVODOPA
     Dosage: DOSES CONTINUOUSLY MONITORED AND ADAPTED
     Route: 050
     Dates: start: 20170616, end: 20181022
  3. DUODOPA [Suspect]
     Active Substance: CARBIDOPA\LEVODOPA
     Dosage: MD= 1ML, CD= 1.9ML/HR DURING 16HRS, ED= 0.8ML
     Route: 050
     Dates: start: 20190705
  4. DUODOPA [Suspect]
     Active Substance: CARBIDOPA\LEVODOPA
     Dosage: MD= 2ML?CD= 1.9ML/HR DURING 16HRS ?ED= 1.1ML
     Route: 050
     Dates: start: 20181022, end: 20190527
  5. DUODOPA [Suspect]
     Active Substance: CARBIDOPA\LEVODOPA
     Dosage: MD= 1ML?CD= 1.9ML/HR DURING 16HRS ?ED= 1.1ML
     Route: 050
     Dates: start: 20190527, end: 20190705

REACTIONS (6)
  - Balance disorder [Not Recovered/Not Resolved]
  - Dyskinesia [Not Recovered/Not Resolved]
  - Mobility decreased [Recovering/Resolving]
  - Motor dysfunction [Unknown]
  - Device issue [Unknown]
  - Nausea [Unknown]

NARRATIVE: CASE EVENT DATE: 2019
